FAERS Safety Report 14906724 (Version 1)
Quarter: 2018Q2

REPORT INFORMATION
  Report Type: Spontaneous
  Country: GB (occurrence: GB)
  Receive Date: 20180517
  Receipt Date: 20180517
  Transmission Date: 20180711
  Serious: Yes (Hospitalization)
  Sender: FDA-Public Use
  Company Number: GB-BAXTER-2018BAX013974

PATIENT
  Age: 11 Year
  Sex: Female
  Weight: 24.2 kg

DRUGS (2)
  1. DESFLURANE 100%V/V INHALATION VAPOUR, LIQUID [Suspect]
     Active Substance: DESFLURANE
     Indication: ANAESTHESIA
     Dosage: 0.7 MAC X 8 HOURS
     Route: 055
  2. METRONIDAZOLE. [Concomitant]
     Active Substance: METRONIDAZOLE
     Indication: PRODUCT USED FOR UNKNOWN INDICATION
     Route: 065

REACTIONS (3)
  - Drug-induced liver injury [Recovering/Resolving]
  - Blood lactic acid increased [Unknown]
  - Rhabdomyolysis [Unknown]

NARRATIVE: CASE EVENT DATE: 20180423
